FAERS Safety Report 14856694 (Version 1)
Quarter: 2018Q2

REPORT INFORMATION
  Report Type: Spontaneous
  Country: US (occurrence: US)
  Receive Date: 20180507
  Receipt Date: 20180507
  Transmission Date: 20180711
  Serious: No
  Sender: FDA-Public Use
  Company Number: US-ROCHE-2059560

PATIENT
  Age: 73 Year
  Sex: Male

DRUGS (5)
  1. ESBRIET [Suspect]
     Active Substance: PIRFENIDONE
     Dosage: 4 TABLETS BY MOUTH DAILY
     Route: 048
  2. ESBRIET [Suspect]
     Active Substance: PIRFENIDONE
     Dosage: THREE TABLETS;ONGOING: YES
     Route: 048
     Dates: start: 201801
  3. ESBRIET [Suspect]
     Active Substance: PIRFENIDONE
     Indication: IDIOPATHIC PULMONARY FIBROSIS
     Dosage: TAKING 6 TABLETS A DAY, TWO UNKNOWN MG;ONGOING: NO
     Route: 048
     Dates: start: 201711, end: 201712
  4. ESBRIET [Suspect]
     Active Substance: PIRFENIDONE
     Dosage: TAKING 3 TABLETS IN MORNING AND NIGHT, TWO AT NOON ;ONGOING: NO
     Route: 048
     Dates: start: 201712, end: 201801
  5. ESBRIET [Suspect]
     Active Substance: PIRFENIDONE
     Route: 048

REACTIONS (6)
  - Weight increased [Not Recovered/Not Resolved]
  - Dysgeusia [Not Recovered/Not Resolved]
  - Oxygen saturation decreased [Unknown]
  - Decreased activity [Unknown]
  - Blood pressure increased [Unknown]
  - Malaise [Not Recovered/Not Resolved]

NARRATIVE: CASE EVENT DATE: 201801
